FAERS Safety Report 24668657 (Version 1)
Quarter: 2024Q4

REPORT INFORMATION
  Report Type: Spontaneous
  Country: US (occurrence: None)
  Receive Date: 20241127
  Receipt Date: 20241127
  Transmission Date: 20250115
  Serious: Yes (Hospitalization)
  Sender: ISTITUTO BICHIMICO ITALIANO GIOVANNI LORENZINI (IBIGEN)
  Company Number: US-MLMSERVICE-20241030-PI243851-00263-3

PATIENT
  Age: 52 Year
  Sex: Female

DRUGS (6)
  1. PIPERACILLIN AND TAZOBACTAM [Suspect]
     Active Substance: PIPERACILLIN SODIUM\TAZOBACTAM SODIUM
     Indication: Septic shock
  2. VANCOMYCIN [Concomitant]
     Active Substance: VANCOMYCIN
     Indication: Septic shock
  3. CLINDAMYCIN [Concomitant]
     Active Substance: CLINDAMYCIN
     Indication: Septic shock
  4. DAPTOMYCIN [Concomitant]
     Active Substance: DAPTOMYCIN
     Indication: Septic shock
  5. CEFAZOLIN [Concomitant]
     Active Substance: CEFAZOLIN
     Indication: Septic shock
  6. CEPHALEXIN [Concomitant]
     Active Substance: CEPHALEXIN
     Indication: Septic shock

REACTIONS (1)
  - Drug reaction with eosinophilia and systemic symptoms [Unknown]
